FAERS Safety Report 4439730-4 (Version None)
Quarter: 2004Q3

REPORT INFORMATION
  Report Type: 
  Country: None (occurrence: None)
  Receive Date: 20040901
  Receipt Date: 20040901
  Transmission Date: 20050211
  Serious: Yes (Life-Threatening, Hospitalization)
  Sender: FDA-Public Use
  Company Number: None

PATIENT
  Age: 32 Year
  Sex: Male
  Weight: 83.9154 kg

DRUGS (2)
  1. NEURONTIN [Suspect]
     Indication: DEPRESSION
     Dosage: 2 TIMES DAILY ORAL
     Route: 048
  2. NEURONTIN [Suspect]
     Indication: PAIN
     Dosage: 2 TIMES DAILY ORAL
     Route: 048

REACTIONS (3)
  - ANXIETY [None]
  - CONFUSIONAL STATE [None]
  - SUICIDAL IDEATION [None]
